FAERS Safety Report 22146753 (Version 5)
Quarter: 2024Q2

REPORT INFORMATION
  Report Type: Spontaneous
  Country: US (occurrence: US)
  Receive Date: 20230328
  Receipt Date: 20240411
  Transmission Date: 20240716
  Serious: Yes (Hospitalization, Other)
  Sender: FDA-Public Use
  Company Number: US-PFIZER INC-2021209728

PATIENT
  Age: 66 Year
  Sex: Male
  Weight: 100.7 kg

DRUGS (4)
  1. VYNDAMAX [Suspect]
     Active Substance: TAFAMIDIS
     Indication: Cardiac amyloidosis
     Dosage: 61 MG, ALTERNATE DAY
  2. VYNDAMAX [Suspect]
     Active Substance: TAFAMIDIS
     Indication: Acquired ATTR amyloidosis
     Dosage: 61 MG, DAILY
     Route: 048
     Dates: start: 2019
  3. VYNDAMAX [Suspect]
     Active Substance: TAFAMIDIS
     Indication: Cardiac amyloidosis
     Dosage: 61 MG, 1X/DAY
     Route: 048
     Dates: start: 202006
  4. VYNDAMAX [Suspect]
     Active Substance: TAFAMIDIS
     Dosage: UNK
     Dates: start: 202103

REACTIONS (6)
  - Gastrointestinal disorder [Unknown]
  - Fall [Unknown]
  - Femur fracture [Unknown]
  - Loss of consciousness [Unknown]
  - Cancer surgery [Unknown]
  - Off label use [Unknown]

NARRATIVE: CASE EVENT DATE: 20220101
